FAERS Safety Report 4285846-5 (Version None)
Quarter: 2004Q1

REPORT INFORMATION
  Report Type: 
  Country: None (occurrence: None)
  Receive Date: 20040203
  Receipt Date: 20040119
  Transmission Date: 20041129
  Serious: Yes (Hospitalization)
  Sender: FDA-Public Use
  Company Number: 2003SE04311

PATIENT
  Age: 62 Year
  Sex: Female

DRUGS (9)
  1. BLOPRESS [Suspect]
     Indication: HYPERTENSION
     Dosage: 4 MG QD PO
     Route: 048
     Dates: start: 20021129, end: 20030610
  2. BLOPRESS [Suspect]
     Indication: HYPERTENSION
     Dosage: CUMULATIVE DOSE: 776MG
     Dates: start: 20030704, end: 20030704
  3. CLEAMINE [Concomitant]
  4. DIMEMORFAN PHOSPHATE [Concomitant]
  5. BROMHEXINE HYDROCHLORIDE [Concomitant]
  6. DASEN [Concomitant]
  7. TERBINAFINE HCL [Concomitant]
  8. ETRETINATE [Concomitant]
  9. EPINASTINE HYDROCHLORIDE [Concomitant]

REACTIONS (6)
  - CANDIDIASIS [None]
  - DERMATITIS EXFOLIATIVE [None]
  - EPIDERMAL NECROSIS [None]
  - ERYTHEMA [None]
  - PITYRIASIS RUBRA PILARIS [None]
  - TINEA BLANCA [None]
